FAERS Safety Report 8352110-4 (Version None)
Quarter: 2012Q2

REPORT INFORMATION
  Report Type: 
  Country: None (occurrence: None)
  Receive Date: 20120509
  Receipt Date: 20120425
  Transmission Date: 20120825
  Serious: Yes (Death)
  Sender: FDA-Public Use
  Company Number: JP-2012-15100

PATIENT

DRUGS (1)
  1. SAMSCA [Suspect]
     Dosage: ORAL
     Route: 048

REACTIONS (1)
  - DEATH [None]
